FAERS Safety Report 9144467 (Version 2)
Quarter: 2013Q1

REPORT INFORMATION
  Report Type: Spontaneous
  Country: CH (occurrence: CH)
  Receive Date: 20130306
  Receipt Date: 20130318
  Transmission Date: 20140127
  Serious: Yes (Death, Hospitalization)
  Sender: FDA-Public Use
  Company Number: CH-TEVA-389037ISR

PATIENT
  Age: 59 Year
  Sex: Male

DRUGS (2)
  1. CO-ENATEC [Suspect]
     Route: 048
     Dates: end: 20121115
  2. VIMPAT [Suspect]
     Indication: EPILEPSY
     Dosage: 200 MILLIGRAM DAILY;
     Route: 048
     Dates: start: 2010, end: 20121027

REACTIONS (6)
  - Hepatic failure [Fatal]
  - Hepatitis [Fatal]
  - Hepatic cirrhosis [Fatal]
  - Jaundice [Fatal]
  - Ascites [Fatal]
  - Nausea [Fatal]
